FAERS Safety Report 10024356 (Version 1)
Quarter: 2014Q1

REPORT INFORMATION
  Report Type: Spontaneous
  Country: GB (occurrence: None)
  Receive Date: 20140203
  Receipt Date: 20140203
  Transmission Date: 20141002
  Serious: Yes (Life-Threatening, Hospitalization, Disabling)
  Sender: FDA-Public Use
  Company Number: GB-ALKEM-000202

PATIENT
  Age: 27 Year
  Sex: Male

DRUGS (2)
  1. QUETIAPINE [Suspect]
     Indication: DEPRESSION
     Dosage: 50.00000000-MG-2.0 / ORAL TIMES PER-1.00 DAYS
     Route: 048
     Dates: start: 20110516, end: 20130930
  2. VENLAFAXINE [Suspect]
     Indication: DEPRESSION
     Dosage: 150.0000000-MG-2.00 / ORAL TIMES PER-1 DAYS
     Route: 048
     Dates: start: 20130101, end: 20131004

REACTIONS (1)
  - Congestive cardiomyopathy [None]
